FAERS Safety Report 9355993 (Version 1)
Quarter: 2013Q2

REPORT INFORMATION
  Report Type: Spontaneous
  Country: US (occurrence: US)
  Receive Date: 20130619
  Receipt Date: 20130619
  Transmission Date: 20140414
  Serious: Yes (Hospitalization)
  Sender: FDA-Public Use
  Company Number: US-BAYER-2013-074060

PATIENT
  Age: 75 Year
  Sex: Male

DRUGS (13)
  1. NEXAVAR [Suspect]
     Indication: HEPATIC CANCER
     Dosage: 400 MG, BID
     Route: 048
     Dates: start: 2011, end: 201306
  2. NEXAVAR [Suspect]
     Indication: HEPATIC CANCER
  3. PROMETHAZINE [Concomitant]
     Dosage: UNK
     Dates: start: 20130523
  4. OXYCODONE [Concomitant]
     Dosage: UNK
     Dates: start: 20130523
  5. FUROSEMIDE [Concomitant]
     Dosage: UNK
     Dates: start: 20121224
  6. FUROSEMIDE [Concomitant]
     Dosage: UNK
     Dates: start: 20130523
  7. MORPHINE SULFATE [Concomitant]
     Dosage: UNK
     Dates: start: 20130403
  8. FELODIPINE [Concomitant]
     Dosage: UNK
     Dates: start: 20130328
  9. XELODA [Concomitant]
     Dosage: UNK UNK, BID
     Dates: start: 20111116, end: 20120315
  10. VIGAMOX [Concomitant]
     Dosage: UNK
     Dates: end: 20120410
  11. PREDNISOLONE [Concomitant]
     Dosage: UNK
     Dates: end: 20120410
  12. NEVANAC [Concomitant]
     Dosage: UNK
     Dates: end: 20120410
  13. TAMSULOSIN [Concomitant]

REACTIONS (2)
  - Musculoskeletal chest pain [Recovering/Resolving]
  - Rib fracture [Recovering/Resolving]
